FAERS Safety Report 6015158-0 (Version None)
Quarter: 2008Q4

REPORT INFORMATION
  Report Type: 
  Country: None (occurrence: None)
  Receive Date: 20081222
  Receipt Date: 20081212
  Transmission Date: 20090506
  Serious: Yes (Hospitalization)
  Sender: FDA-Public Use
  Company Number: DE-BAXTER-2008BH013828

PATIENT
  Age: 42 Year
  Sex: Female
  Weight: 59 kg

DRUGS (7)
  1. CYCLOPHOSPHAMIDE [Suspect]
     Indication: BREAST CANCER
     Route: 042
     Dates: start: 20080826
  2. TAXOL [Suspect]
     Indication: BREAST CANCER
     Route: 042
     Dates: start: 20080715, end: 20080812
  3. EPIRUBICIN [Suspect]
     Indication: BREAST CANCER
     Route: 042
     Dates: start: 20080603, end: 20080701
  4. NEULASTA [Concomitant]
     Route: 058
     Dates: start: 20080604
  5. EPOETIN BETA [Concomitant]
     Route: 058
     Dates: start: 20080604
  6. DEXAMETHASONE [Concomitant]
     Dates: start: 20080827, end: 20080829
  7. CIPROFLOXACIN HCL [Concomitant]
     Dates: start: 20080826

REACTIONS (3)
  - FATIGUE [None]
  - NAUSEA [None]
  - VOMITING [None]
